FAERS Safety Report 4312447-2 (Version None)
Quarter: 2004Q1

REPORT INFORMATION
  Report Type: 
  Country: None (occurrence: None)
  Receive Date: 20040303
  Receipt Date: 20031020
  Transmission Date: 20041129
  Serious: Yes (Death)
  Sender: FDA-Public Use
  Company Number: 2003EU006929

PATIENT
  Age: 54 Year
  Sex: 0

DRUGS (2)
  1. FK506 (TACROLIMUS) CAPSULE [Suspect]
     Indication: LIVER TRANSPLANT
     Dosage: 6 MG, BID, ORAL; 5 MG, BID
     Route: 048
  2. PREDNISONE [Concomitant]

REACTIONS (10)
  - ANAEMIA [None]
  - DRUG LEVEL INCREASED [None]
  - EPSTEIN-BARR VIRUS INFECTION [None]
  - GENERAL PHYSICAL HEALTH DETERIORATION [None]
  - HEPATOMEGALY [None]
  - JAUNDICE [None]
  - LEUKOCYTOSIS [None]
  - LIVER TRANSPLANT REJECTION [None]
  - LYMPHOPROLIFERATIVE DISORDER [None]
  - THROMBOCYTOPENIA [None]
